FAERS Safety Report 23391462 (Version 1)
Quarter: 2024Q1

REPORT INFORMATION
  Report Type: Report from Study
  Country: EG (occurrence: EG)
  Receive Date: 20240111
  Receipt Date: 20240111
  Transmission Date: 20240410
  Serious: Yes (Death)
  Sender: FDA-Public Use
  Company Number: EG-002147023-NVSC2024EG004395

PATIENT
  Age: 1 Day
  Sex: Male

DRUGS (3)
  1. NEORAL [Suspect]
     Active Substance: CYCLOSPORINE
     Indication: Foetal exposure during pregnancy
     Dosage: MATERNAL DOSE (2 DOSAGE FORM, QD (EITHER 150 MGS OR 100 MGS AS PER THE PATIENT^S WORDS AS SHE STATED
     Route: 064
  2. ACRETIN [Concomitant]
     Indication: Foetal exposure during pregnancy
     Dosage: MATERNAL DOSE (2 DOSAGE FORM 2 TABS OF 10MGS THEN BECAME 2 TABS DAILY OF 25MGS . (1 TAB OF 50 MGS IF
     Route: 064
  3. BETNOVATE [Concomitant]
     Active Substance: BETAMETHASONE
     Indication: Foetal exposure during pregnancy
     Dosage: MATERNAL DOSE: (IN EXCHANGE WITH CORTISONE CREAMS, STARTED IN 2013 AND STOPPED IN 2016)
     Route: 064

REACTIONS (3)
  - Dyspnoea [Fatal]
  - Abdominal discomfort [Fatal]
  - Weight abnormal [Fatal]
